FAERS Safety Report 24829489 (Version 1)
Quarter: 2025Q1

REPORT INFORMATION
  Report Type: Spontaneous
  Country: LB (occurrence: LB)
  Receive Date: 20250110
  Receipt Date: 20250110
  Transmission Date: 20250408
  Serious: Yes (Hospitalization, Other)
  Sender: ALKEM
  Company Number: LB-ALKEM LABORATORIES LIMITED-LB-ALKEM-2024-17163

PATIENT
  Age: 74 Year
  Sex: Female

DRUGS (2)
  1. CAPECITABINE [Suspect]
     Active Substance: CAPECITABINE
     Indication: Immunosuppression
     Route: 065
  2. VINORELBINE [Suspect]
     Active Substance: VINORELBINE TARTRATE
     Indication: Immunosuppression
     Route: 065

REACTIONS (2)
  - Herpes zoster oticus [Recovered/Resolved]
  - Meningitis [Recovered/Resolved]
